FAERS Safety Report 19649346 (Version 2)
Quarter: 2021Q3

REPORT INFORMATION
  Report Type: Spontaneous
  Country: US (occurrence: US)
  Receive Date: 20210802
  Receipt Date: 20210824
  Transmission Date: 20211014
  Serious: Yes (Other)
  Sender: FDA-Public Use
  Company Number: US-PFIZER INC-202100929290

PATIENT
  Age: 71 Year
  Sex: Female

DRUGS (1)
  1. XELJANZ XR [Suspect]
     Active Substance: TOFACITINIB CITRATE
     Dosage: 11 MG, UNK

REACTIONS (7)
  - Rheumatoid arthritis [Unknown]
  - Lymphoedema [Unknown]
  - Gait inability [Unknown]
  - Wound [Unknown]
  - Oedema peripheral [Unknown]
  - Impaired driving ability [Unknown]
  - Illness [Unknown]
